FAERS Safety Report 10256727 (Version 1)
Quarter: 2014Q2

REPORT INFORMATION
  Report Type: Report from Study
  Country: PL (occurrence: PL)
  Receive Date: 20140624
  Receipt Date: 20140624
  Transmission Date: 20141212
  Serious: Yes (Hospitalization, Other)
  Sender: FDA-Public Use
  Company Number: PL-JNJFOC-20131002796

PATIENT
  Age: 87 Year
  Sex: Female
  Weight: 64 kg

DRUGS (10)
  1. XARELTO [Suspect]
     Indication: ATRIAL FIBRILLATION
     Route: 048
     Dates: start: 20130509
  2. XARELTO [Suspect]
     Indication: CEREBROVASCULAR ACCIDENT PROPHYLAXIS
     Route: 048
     Dates: start: 20130509
  3. RAMIPRIL [Concomitant]
     Route: 065
     Dates: start: 2012
  4. IPRES [Concomitant]
     Route: 065
     Dates: start: 2012
  5. WARFARIN [Concomitant]
     Route: 065
     Dates: start: 201205, end: 20130508
  6. METFORMAX [Concomitant]
     Route: 065
     Dates: start: 2012
  7. MILURIT [Concomitant]
     Route: 065
     Dates: start: 20130724
  8. SORBIFER DORULES [Concomitant]
     Route: 065
     Dates: start: 20130724
  9. METOCARD [Concomitant]
     Route: 065
     Dates: start: 2012
  10. DIAPREL [Concomitant]
     Route: 065
     Dates: start: 2012

REACTIONS (1)
  - Iron deficiency anaemia [Recovering/Resolving]
